FAERS Safety Report 8066889-2 (Version None)
Quarter: 2012Q1

REPORT INFORMATION
  Report Type: 
  Country: None (occurrence: None)
  Receive Date: 20120124
  Receipt Date: 20120110
  Transmission Date: 20120608
  Serious: Yes (Other)
  Sender: FDA-Public Use
  Company Number: US-ROCHE-GNE314028

PATIENT
  Sex: Female
  Weight: 103.51 kg

DRUGS (26)
  1. LEXAPRO [Concomitant]
     Indication: HOT FLUSH
     Route: 048
  2. MICARDIS [Concomitant]
     Indication: HYPERTENSION
     Route: 048
  3. AMBIEN [Concomitant]
     Indication: INSOMNIA
     Dosage: FREQUENCY: QNS
     Route: 048
  4. CRESTOR [Concomitant]
     Indication: HYPERCHOLESTEROLAEMIA
     Route: 048
  5. PROAIR HFA [Concomitant]
     Indication: ASTHMA
     Dosage: ROUTE: INH; DOSING 2 PUFFS; PRN
  6. LASIX [Concomitant]
     Indication: OEDEMA
     Dosage: PRN
     Route: 048
     Dates: start: 20070101
  7. OXYGEN [Concomitant]
     Indication: ASTHMA
     Dosage: ROUTE: INH; FREQUENCY QHS
     Dates: start: 20100101
  8. INTEGRA PLUS [Concomitant]
     Indication: ANAEMIA
     Route: 048
     Dates: start: 20110101
  9. LIDODERM [Concomitant]
     Indication: BACK PAIN
     Dosage: 12 HRS ON, 12 HRS OFF
     Route: 061
     Dates: start: 20111001
  10. XANAX [Concomitant]
     Indication: ANXIETY
     Route: 048
     Dates: start: 20070101
  11. OXYCONTIN [Concomitant]
     Indication: OSTEONECROSIS
     Dosage: PRN
     Route: 048
     Dates: start: 20111201
  12. AMITRIPTYLINE HCL [Concomitant]
     Indication: INSOMNIA
     Dosage: QNS
     Route: 048
  13. ALLEGRA-D 12 HOUR [Concomitant]
     Indication: HYPERSENSITIVITY
     Dosage: DOSING:UNKNOWN; FREQUENCY: DAILY
     Route: 048
     Dates: start: 20100101
  14. TRACLEER [Concomitant]
     Indication: PULMONARY HYPERTENSION
     Route: 048
     Dates: start: 20070201
  15. PREVACID [Concomitant]
     Dosage: INDICATION; REFLUX
     Route: 048
  16. PATADAY [Concomitant]
     Indication: HYPERSENSITIVITY
     Dosage: ROUTE: OP, DOSING: 2 DROPS PER EYE
     Dates: start: 20090101
  17. VOLTAREN [Concomitant]
     Indication: PAIN
     Dosage: DOSING QID, FREQUENCY PRN
     Dates: start: 20100101
  18. XOLAIR [Suspect]
     Indication: ASTHMA
     Dosage: 300 MG, Q2W
     Route: 058
     Dates: start: 20070101, end: 20110214
  19. OXYCODONE HCL [Concomitant]
     Indication: OSTEONECROSIS
     Dosage: PRN
     Route: 048
     Dates: start: 20111201
  20. SINGULAIR [Concomitant]
     Indication: ASTHMA
     Dosage: FREQUENCY: QNS
     Route: 048
  21. ZANAFLEX [Concomitant]
     Indication: FIBROMYALGIA
     Dosage: 3 TABS; QNS
     Route: 048
  22. ESTRATEST H.S. [Concomitant]
     Dosage: INDICATION: HORMONE REPLACEMENT; DOSING:UNKNOWN; FREQUENCY: DAILY
     Route: 048
     Dates: start: 20090101
  23. OXYGEN [Concomitant]
     Indication: PULMONARY HYPERTENSION
  24. XOPENEX [Concomitant]
     Indication: ASTHMA
     Dosage: ROUTE: INH; FREQUENCY: PRN
  25. XOLAIR [Suspect]
     Indication: HYPERSENSITIVITY
  26. PULMICORT-100 [Concomitant]
     Indication: ASTHMA
     Dates: start: 20100101

REACTIONS (5)
  - OSTEONECROSIS [None]
  - DYSPNOEA [None]
  - URTICARIA [None]
  - WHEEZING [None]
  - PRURITUS [None]
